FAERS Safety Report 24750731 (Version 1)
Quarter: 2024Q4

REPORT INFORMATION
  Report Type: Report from Study
  Country: US (occurrence: US)
  Receive Date: 20241218
  Receipt Date: 20241218
  Transmission Date: 20250114
  Serious: Yes (Other)
  Sender: ABBVIE
  Company Number: US-ABBVIE-6002819

PATIENT
  Age: 75 Year
  Sex: Female
  Weight: 55 kg

DRUGS (3)
  1. RINVOQ [Suspect]
     Active Substance: UPADACITINIB
     Indication: Rheumatoid arthritis
     Dosage: MORNING
     Route: 048
     Dates: start: 2022
  2. RINVOQ [Suspect]
     Active Substance: UPADACITINIB
     Indication: Rheumatoid arthritis
     Route: 048
  3. ROSUVASTATIN [Concomitant]
     Active Substance: ROSUVASTATIN
     Indication: Blood cholesterol

REACTIONS (3)
  - Neoplasm malignant [Recovered/Resolved]
  - Alopecia [Recovered/Resolved]
  - Alopecia [Not Recovered/Not Resolved]

NARRATIVE: CASE EVENT DATE: 20221001
